FAERS Safety Report 9297743 (Version 1)
Quarter: 2013Q2

REPORT INFORMATION
  Report Type: Report from Study
  Country: MX (occurrence: MX)
  Receive Date: 20130520
  Receipt Date: 20130520
  Transmission Date: 20140414
  Serious: Yes (Death, Other)
  Sender: FDA-Public Use
  Company Number: PHHY2013MX047966

PATIENT
  Sex: Male

DRUGS (1)
  1. GLIVEC [Suspect]
     Indication: ACUTE LYMPHOCYTIC LEUKAEMIA
     Dosage: 400 MG
     Dates: start: 20130312

REACTIONS (9)
  - Acute lymphocytic leukaemia [Fatal]
  - B-lymphocyte count increased [Fatal]
  - Cytogenetic analysis abnormal [Fatal]
  - Neutropenic colitis [Unknown]
  - Pseudomonas infection [Unknown]
  - Neutropenia [Unknown]
  - Leukaemia recurrent [Unknown]
  - Pyrexia [Unknown]
  - Abdominal distension [Recovered/Resolved]
